FAERS Safety Report 10088849 (Version 1)
Quarter: 2014Q2

REPORT INFORMATION
  Report Type: Report from Study
  Country: CA (occurrence: CA)
  Receive Date: 20140421
  Receipt Date: 20140421
  Transmission Date: 20141212
  Serious: Yes (Other)
  Sender: FDA-Public Use
  Company Number: CA-JNJFOC-20140410654

PATIENT
  Sex: Female
  Weight: 120 kg

DRUGS (5)
  1. REMICADE [Suspect]
     Indication: CROHN^S DISEASE
     Route: 042
     Dates: start: 200705
  2. SYNTHROID [Concomitant]
     Dosage: DOSE 125 (UNITS UNSPECIFIED)
     Route: 065
  3. PAXIL [Concomitant]
     Route: 065
  4. ZANTAC [Concomitant]
     Route: 065
  5. IMURAN [Concomitant]
     Route: 065

REACTIONS (1)
  - Fistula [Recovering/Resolving]
